FAERS Safety Report 17029852 (Version 1)
Quarter: 2019Q4

REPORT INFORMATION
  Report Type: Report from Study
  Country: DE (occurrence: DE)
  Receive Date: 20191114
  Receipt Date: 20191114
  Transmission Date: 20200122
  Serious: Yes (Other)
  Sender: FDA-Public Use
  Company Number: PHHY2015DE027428

PATIENT
  Age: 31 Year
  Sex: Female

DRUGS (2)
  1. GILENYA [Suspect]
     Active Substance: FINGOLIMOD HYDROCHLORIDE
     Indication: MULTIPLE SCLEROSIS
     Dosage: UNK UNK, QD
     Route: 048
     Dates: start: 20140708, end: 20181019
  2. GILENYA [Suspect]
     Active Substance: FINGOLIMOD HYDROCHLORIDE
     Dosage: UNK UNK, QD
     Route: 048
     Dates: start: 20181026

REACTIONS (9)
  - Lymphopenia [Recovered/Resolved]
  - Ataxia [Unknown]
  - Cognitive disorder [Unknown]
  - Bladder dysfunction [Unknown]
  - Lymphopenia [Recovered/Resolved]
  - Lymphocyte count decreased [Unknown]
  - Fall [Recovered/Resolved]
  - Influenza [Recovered/Resolved]
  - White blood cell count decreased [Unknown]

NARRATIVE: CASE EVENT DATE: 20141229
